FAERS Safety Report 21132293 (Version 1)
Quarter: 2022Q3

REPORT INFORMATION
  Report Type: Spontaneous
  Country: US (occurrence: US)
  Receive Date: 20220726
  Receipt Date: 20220726
  Transmission Date: 20221027
  Serious: No
  Sender: FDA-Public Use
  Company Number: US-BRISTOL-MYERS SQUIBB COMPANY-2022-079525

PATIENT
  Age: 81 Year
  Sex: Female

DRUGS (1)
  1. REVLIMID [Suspect]
     Active Substance: LENALIDOMIDE
     Indication: Product used for unknown indication
     Dosage: FREQUENCY-1 WHOLE CAPSULE BY MOUTH WITH WATER DAILY ON DAYS 1 THROUGH 21 WITH  7 DAYS OFF.
     Route: 048

REACTIONS (2)
  - Pain [Recovered/Resolved]
  - Arthritis [Recovered/Resolved]
